FAERS Safety Report 5664847-6 (Version None)
Quarter: 2008Q1

REPORT INFORMATION
  Report Type: 
  Country: None (occurrence: None)
  Receive Date: 20080314
  Receipt Date: 20080229
  Transmission Date: 20080703
  Serious: Yes (Hospitalization)
  Sender: FDA-Public Use
  Company Number: US-AMGEN-US251191

PATIENT
  Sex: Female
  Weight: 70.8 kg

DRUGS (3)
  1. PROCRIT [Suspect]
     Indication: ANAEMIA
     Route: 058
     Dates: start: 20070801
  2. SYNTHROID [Concomitant]
     Route: 048
     Dates: start: 20050101
  3. PROTONIX [Concomitant]
     Dates: start: 20070801

REACTIONS (2)
  - DERMATITIS EXFOLIATIVE [None]
  - DERMATITIS PSORIASIFORM [None]
